FAERS Safety Report 10430101 (Version 2)
Quarter: 2014Q3

REPORT INFORMATION
  Report Type: Report from Study
  Country: KR (occurrence: KR)
  Receive Date: 20140904
  Receipt Date: 20140904
  Transmission Date: 20150326
  Serious: Yes (Hospitalization)
  Sender: FDA-Public Use
  Company Number: PHHO2014KR010644

PATIENT

DRUGS (3)
  1. STI571 [Suspect]
     Active Substance: IMATINIB MESYLATE
     Indication: GASTROINTESTINAL STROMAL TUMOUR
     Dosage: 400 MG, QD
     Route: 048
     Dates: start: 20140331
  2. STI571 [Suspect]
     Active Substance: IMATINIB MESYLATE
     Dosage: 800 MG, QD
     Dates: start: 20140610, end: 20140731
  3. STI571 [Suspect]
     Active Substance: IMATINIB MESYLATE
     Dosage: 600 MG, QD
     Dates: start: 20140430

REACTIONS (1)
  - Pneumonitis [Recovered/Resolved]

NARRATIVE: CASE EVENT DATE: 20140728
